FAERS Safety Report 19051147 (Version 1)
Quarter: 2021Q1

REPORT INFORMATION
  Report Type: Spontaneous
  Country: US (occurrence: US)
  Receive Date: 20210324
  Receipt Date: 20210324
  Transmission Date: 20210420
  Serious: No
  Sender: FDA-Public Use
  Company Number: US-ALLERGAN-2100235US

PATIENT
  Age: 79 Year
  Sex: Female

DRUGS (5)
  1. DELZICOL [Suspect]
     Active Substance: MESALAMINE
     Indication: COLITIS
     Dosage: 400 MG, QID
     Route: 048
     Dates: start: 202006
  2. DELZICOL [Suspect]
     Active Substance: MESALAMINE
     Indication: COELIAC DISEASE
     Dosage: 400 MG, TID
     Route: 048
     Dates: start: 202006
  3. DELZICOL [Suspect]
     Active Substance: MESALAMINE
     Indication: CROHN^S DISEASE
  4. AZATHIOPRINE. [Concomitant]
     Active Substance: AZATHIOPRINE
     Indication: PRODUCT USED FOR UNKNOWN INDICATION
     Dosage: 50 MG
  5. DELZICOL [Suspect]
     Active Substance: MESALAMINE
     Indication: DIARRHOEA

REACTIONS (7)
  - Vitreous floaters [Not Recovered/Not Resolved]
  - Groin pain [Unknown]
  - Off label use [Unknown]
  - Drug ineffective for unapproved indication [Unknown]
  - Tinnitus [Not Recovered/Not Resolved]
  - Arthralgia [Unknown]
  - Gait disturbance [Unknown]

NARRATIVE: CASE EVENT DATE: 202006
